FAERS Safety Report 23888567 (Version 1)
Quarter: 2024Q2

REPORT INFORMATION
  Report Type: Spontaneous
  Country: US (occurrence: None)
  Receive Date: 20240522
  Receipt Date: 20240522
  Transmission Date: 20240716
  Serious: Yes (Hospitalization)
  Sender: FDA-Public Use
  Company Number: None

PATIENT
  Sex: Male

DRUGS (2)
  1. MEKTOVI [Suspect]
     Active Substance: BINIMETINIB
     Indication: Malignant melanoma
     Dosage: 30 MG TWICE A DAY ORAL?
     Route: 048
  2. BRAFTOVI [Suspect]
     Active Substance: ENCORAFENIB

REACTIONS (3)
  - Urinary tract infection [None]
  - Gastrointestinal infection [None]
  - Sepsis [None]
